FAERS Safety Report 18196151 (Version 1)
Quarter: 2020Q3

REPORT INFORMATION
  Report Type: Spontaneous
  Country: FR (occurrence: FR)
  Receive Date: 20200826
  Receipt Date: 20200826
  Transmission Date: 20201103
  Serious: Yes (Hospitalization, Other)
  Sender: FDA-Public Use
  Company Number: FR-LUPIN PHARMACEUTICALS INC.-2020-04975

PATIENT
  Age: 69 Year
  Sex: Female
  Weight: 71 kg

DRUGS (7)
  1. SIMVASTATIN. [Suspect]
     Active Substance: SIMVASTATIN
     Indication: HYPERCHOLESTEROLAEMIA
     Dosage: 40 MILLIGRAM, QD
     Route: 048
     Dates: end: 20191123
  2. RIBOCICLIB. [Interacting]
     Active Substance: RIBOCICLIB
     Dosage: 200 MILLIGRAM, QD (FIRST WEEK)
     Route: 065
  3. RIBOCICLIB. [Interacting]
     Active Substance: RIBOCICLIB
     Indication: BREAST CANCER STAGE IV
     Dosage: 600 MILLIGRAM, QD (600 MG ONCE DAILY FOR THREE WEEKS FOLLOWED BY SEVEN DAYS OFF, PER OS )
     Route: 048
     Dates: start: 20191028, end: 20191123
  4. RIBOCICLIB. [Interacting]
     Active Substance: RIBOCICLIB
     Dosage: 400 MILLIGRAM, QD (SECOND WEEK)
     Route: 065
  5. SIMVASTATIN. [Interacting]
     Active Substance: SIMVASTATIN
     Indication: HYPERTENSION
  6. RIBOCICLIB. [Interacting]
     Active Substance: RIBOCICLIB
     Dosage: 600 MILLIGRAM, QD (THIRD WEEK)
     Route: 065
  7. LETROZOLE. [Concomitant]
     Active Substance: LETROZOLE
     Indication: BREAST CANCER STAGE IV
     Dosage: 2.5 MILLIGRAM, QD
     Route: 065

REACTIONS (3)
  - Off label use [Unknown]
  - Rhabdomyolysis [Recovered/Resolved]
  - Drug interaction [Unknown]

NARRATIVE: CASE EVENT DATE: 201911
